FAERS Safety Report 8427833-9 (Version None)
Quarter: 2012Q2

REPORT INFORMATION
  Report Type: 
  Country: None (occurrence: None)
  Receive Date: 20120611
  Receipt Date: 20120529
  Transmission Date: 20120825
  Serious: Yes (Other)
  Sender: FDA-Public Use
  Company Number: US-ELI_LILLY_AND_COMPANY-US201204008135

PATIENT
  Age: 66 Year
  Sex: Female

DRUGS (1)
  1. FORTEO [Suspect]
     Indication: OSTEOPOROSIS
     Dosage: UNK, QD
     Dates: start: 20101101, end: 20120501

REACTIONS (8)
  - RADIATION SKIN INJURY [None]
  - MALAISE [None]
  - DEPRESSION [None]
  - SKIN CANCER [None]
  - MEMORY IMPAIRMENT [None]
  - CHEST DISCOMFORT [None]
  - IMPAIRED HEALING [None]
  - CARDIAC VALVE DISEASE [None]
